FAERS Safety Report 4743833-4 (Version None)
Quarter: 2005Q3

REPORT INFORMATION
  Report Type: 
  Country: None (occurrence: None)
  Receive Date: 20050812
  Receipt Date: 20050509
  Transmission Date: 20060218
  Serious: Yes (Hospitalization)
  Sender: FDA-Public Use
  Company Number: AU-MERCK-0505AUS00201

PATIENT
  Age: 78 Year
  Sex: Male
  Weight: 75 kg

DRUGS (2)
  1. ZETIA [Suspect]
     Indication: METABOLIC DISORDER
     Route: 048
     Dates: start: 20040517, end: 20040916
  2. ASPIRIN [Concomitant]
     Route: 048

REACTIONS (3)
  - DEAFNESS NEUROSENSORY [None]
  - MYALGIA [None]
  - VERTIGO [None]
